FAERS Safety Report 9577248 (Version 1)
Quarter: 2013Q4

REPORT INFORMATION
  Report Type: Spontaneous
  Country: US (occurrence: US)
  Receive Date: 20131001
  Receipt Date: 20131001
  Transmission Date: 20140711
  Serious: No
  Sender: FDA-Public Use
  Company Number: US-AMGEN-USASP2013006948

PATIENT
  Sex: Female
  Weight: 57.14 kg

DRUGS (8)
  1. ENBREL [Suspect]
     Indication: PRODUCT USED FOR UNKNOWN INDICATION
     Dosage: 50 MG, QWK
     Route: 058
  2. VOLTAREN                           /00372301/ [Concomitant]
     Dosage: 50 MG, UNK
  3. GABAPENTIN [Concomitant]
     Dosage: 100 MG, UNK
  4. CETRIZINE [Concomitant]
     Dosage: 5 MG, UNK
  5. METHOTREXATE [Concomitant]
     Dosage: 250MG/10,
  6. FOLIC ACID [Concomitant]
     Dosage: UNK
  7. LEUCOVORIN                         /00566701/ [Concomitant]
     Dosage: 350 MG, UNK
  8. HYDROCODONE W/APAP                 /00607101/ [Concomitant]
     Dosage: UNK,5-500 MG

REACTIONS (1)
  - Throat irritation [Unknown]
